FAERS Safety Report 8719748 (Version 2)
Quarter: 2012Q4

REPORT INFORMATION
  Report Type: 
  Country: CA (occurrence: CA)
  Receive Date: 20120813
  Receipt Date: 20121005
  Transmission Date: 20130627
  Serious: Yes (Other)
  Sender: FDA-Public Use
  Company Number: PHHY2009CA26419

PATIENT
  Age: 58 Year
  Sex: Male

DRUGS (6)
  1. ACLASTA [Suspect]
     Indication: OSTEOPOROSIS
     Dosage: 5 mg, UNK
     Route: 042
     Dates: start: 20080722
  2. ACLASTA [Suspect]
     Dosage: 5 mg, UNK
     Route: 042
     Dates: start: 20090728
  3. ACLASTA [Suspect]
     Route: 042
     Dates: start: 20100908
  4. ACLASTA [Suspect]
     Route: 042
     Dates: start: 20111013
  5. VENLAFAXINE [Concomitant]
     Dosage: 37.5 mg, UNK
     Dates: start: 200501
  6. CALCIUM W/VITAMIN D NOS [Concomitant]
     Dosage: UNK UKN (calcium/ vitamin D 500mg/400IV), UNK
     Dates: start: 2012

REACTIONS (13)
  - Thoracic vertebral fracture [Unknown]
  - Prostatic specific antigen increased [Unknown]
  - Feeling hot [Recovered/Resolved]
  - Feeling cold [Recovered/Resolved]
  - Alcoholism [Unknown]
  - Musculoskeletal stiffness [Recovered/Resolved]
  - Chills [Recovered/Resolved]
  - Tremor [Recovered/Resolved]
  - Headache [Recovered/Resolved]
  - Hyperhidrosis [Unknown]
  - Arthralgia [Unknown]
  - Bone pain [Unknown]
  - Asthenia [Unknown]
